FAERS Safety Report 9247848 (Version 2)
Quarter: 2014Q1

REPORT INFORMATION
  Report Type: Spontaneous
  Country: US (occurrence: None)
  Receive Date: 20130305
  Receipt Date: 20140306
  Transmission Date: 20141002
  Serious: Yes (Hospitalization, Disabling, Other)
  Sender: FDA-Public Use
  Company Number: 163-21880-12092241

PATIENT
  Age: 63 Year
  Sex: Male
  Weight: 84.82 kg

DRUGS (11)
  1. REVLIMID (LENALIDOMIDE) (10 MILLIGRAM, CAPSULES) [Suspect]
     Indication: PLASMA CELL MYELOMA
     Dosage: 21 IN 28 D
     Route: 048
     Dates: start: 20120809
  2. DEXAMETHASONE [Concomitant]
  3. VELCADE (BORTEZOMIB) [Concomitant]
  4. VITAMIN C (ASCORBIC ACID) [Concomitant]
  5. BENICAR HCT [Concomitant]
  6. LOTREL [Concomitant]
  7. CATAPRES (CLONIDINE) [Concomitant]
  8. AMBIEN (ZOLPIDEM TARTRATE) [Concomitant]
  9. COREG (CARVEDILOL) [Concomitant]
  10. LORTAB (VICODIN) [Concomitant]
  11. ZOMETA (ZOLEDRONIC ACID) [Concomitant]

REACTIONS (4)
  - Full blood count decreased [None]
  - Pathological fracture [None]
  - Plasmacytoma [None]
  - Plasma cell myeloma [None]
